FAERS Safety Report 7177717-1 (Version None)
Quarter: 2010Q4

REPORT INFORMATION
  Report Type: 
  Country: None (occurrence: None)
  Receive Date: 20101207
  Receipt Date: 20101130
  Transmission Date: 20110411
  Serious: Yes (Other)
  Sender: FDA-Public Use
  Company Number: 20097621

PATIENT
  Sex: Female

DRUGS (1)
  1. LIORESAL [Suspect]
     Indication: MUSCLE SPASTICITY
     Dosage: (MCG, DAILY, INTRATHECAL
     Route: 037

REACTIONS (7)
  - CONDITION AGGRAVATED [None]
  - DEVICE DISLOCATION [None]
  - DEVICE MATERIAL ISSUE [None]
  - DEVICE OCCLUSION [None]
  - DRUG TOLERANCE [None]
  - MUSCLE SPASTICITY [None]
  - PAIN [None]
